FAERS Safety Report 11884614 (Version 2)
Quarter: 2016Q1

REPORT INFORMATION
  Report Type: Spontaneous
  Country: US (occurrence: US)
  Receive Date: 20160104
  Receipt Date: 20160106
  Transmission Date: 20160526
  Serious: No
  Sender: FDA-Public Use
  Company Number: US-009507513-1512USA013935

PATIENT

DRUGS (2)
  1. NEXPLANON [Suspect]
     Active Substance: ETONOGESTREL
     Dosage: 68 MG 1 STANDARD PACKAGE PREFLAPP OF 1
     Route: 059
     Dates: end: 20151216
  2. NEXPLANON [Suspect]
     Active Substance: ETONOGESTREL
     Dosage: UNK
     Route: 059
     Dates: start: 20151216

REACTIONS (3)
  - Product quality issue [Unknown]
  - Device breakage [Recovered/Resolved]
  - No adverse event [Unknown]
